FAERS Safety Report 20161236 (Version 1)
Quarter: 2021Q4

REPORT INFORMATION
  Report Type: Spontaneous
  Country: US (occurrence: US)
  Receive Date: 20211208
  Receipt Date: 20211208
  Transmission Date: 20220303
  Serious: No
  Sender: FDA-Public Use
  Company Number: US-NIPPON SHINYAKU-NIP-2021-000055

PATIENT

DRUGS (1)
  1. VILTEPSO [Suspect]
     Active Substance: VILTOLARSEN
     Indication: Duchenne muscular dystrophy
     Dosage: 2500 MG, QWK
     Route: 042

REACTIONS (3)
  - Blood pressure diastolic decreased [Unknown]
  - Injection site erythema [Unknown]
  - Injection site pruritus [Unknown]
